FAERS Safety Report 6980150-6 (Version None)
Quarter: 2010Q3

REPORT INFORMATION
  Report Type: 
  Country: None (occurrence: None)
  Receive Date: 20100914
  Receipt Date: 20100903
  Transmission Date: 20110219
  Serious: Yes (Hospitalization, Disabling, Other)
  Sender: FDA-Public Use
  Company Number: JP-JNJFOC-20100900820

PATIENT
  Sex: Male

DRUGS (16)
  1. CRAVIT [Suspect]
     Indication: PHARYNGITIS
     Route: 048
  2. CRAVIT [Suspect]
     Indication: UPPER RESPIRATORY TRACT INFLAMMATION
     Route: 048
  3. LOXONIN [Suspect]
     Indication: PHARYNGITIS
     Route: 065
  4. VOLTAREN [Concomitant]
     Indication: PHARYNGITIS
     Route: 054
  5. TRANEXAMIC ACID [Concomitant]
     Indication: PHARYNGITIS
     Route: 048
  6. DEQUALINIUM CHLORIDE [Concomitant]
     Indication: PHARYNGITIS
     Route: 048
  7. PL GRAN [Concomitant]
     Indication: PHARYNGITIS
     Route: 048
  8. ALOSENN [Concomitant]
     Indication: CONSTIPATION
     Route: 048
  9. EPCALOL [Concomitant]
     Indication: EMPHYSEMA
     Route: 048
  10. METHISTA [Concomitant]
     Indication: EMPHYSEMA
     Route: 048
  11. ALDACTONE [Concomitant]
     Indication: CARDIAC FAILURE CONGESTIVE
     Route: 048
  12. DIART [Concomitant]
     Indication: CARDIAC FAILURE CONGESTIVE
     Route: 048
  13. MUCOSTA [Concomitant]
     Indication: GASTRITIS
     Route: 048
  14. ANTOBRON [Concomitant]
     Indication: EMPHYSEMA
     Route: 048
  15. SODIUM PICOSULFATE [Concomitant]
     Indication: CONSTIPATION
     Dosage: AS NEEDED
     Route: 048
  16. VOLTAREN [Concomitant]
     Indication: BACK PAIN
     Dosage: AS NEEDED
     Route: 061

REACTIONS (5)
  - CONVULSION [None]
  - INAPPROPRIATE SCHEDULE OF DRUG ADMINISTRATION [None]
  - OVERDOSE [None]
  - RENAL FAILURE CHRONIC [None]
  - TREMOR [None]
